FAERS Safety Report 4673035-1 (Version None)
Quarter: 2005Q2

REPORT INFORMATION
  Report Type: 
  Country: None (occurrence: None)
  Receive Date: 20050523
  Receipt Date: 20050512
  Transmission Date: 20051028
  Serious: Yes (Death)
  Sender: FDA-Public Use
  Company Number: RS005016-J

PATIENT
  Age: 56 Year
  Sex: Male
  Weight: 54 kg

DRUGS (19)
  1. RABEPRAZOLE SODIUM [Suspect]
     Indication: REFLUX OESOPHAGITIS
     Dosage: 20 MG, 1 IN 1 D, ORAL
     Route: 048
     Dates: start: 20050207, end: 20050214
  2. ETODOLAC [Suspect]
     Indication: ANALGESIC EFFECT
     Dosage: 200 MG, 1 IN 1 D, ORAL
     Route: 048
     Dates: start: 20050127, end: 20050207
  3. FLOMOX (CEFCAPENE PIVOXIL HYDROCHLORIDE) [Suspect]
     Indication: SYSTEMIC ANTIBACTERIAL THERAPY
     Dosage: 300 MG, 1 IN 1 D, ORAL
     Route: 048
     Dates: start: 20050207, end: 20050214
  4. HOKUNALIN (TULOBUTEROL HYDROCHLORIDE) [Concomitant]
  5. SINGULAIR [Concomitant]
  6. AMOBAN (ZOPICLONE) [Concomitant]
  7. MEILAX (ETHYL LOFLAZEPATE) [Concomitant]
  8. PURSENNID (SENNA LEAF) [Concomitant]
  9. NAIXAN (NAPROXEN SODIUM) [Concomitant]
  10. NITRAZEPAM [Concomitant]
  11. VERAPAMIL HYDROCHLORIDE [Concomitant]
  12. DIGOXIN [Concomitant]
  13. FAMOTIDINE [Concomitant]
  14. PRIMPERAN TAB [Concomitant]
  15. DIGOXIN [Concomitant]
  16. AMINOPHYLLIN [Concomitant]
  17. BISOLVON (BROMHEXINE HYDROCHLORIDE) [Concomitant]
  18. MEROPEN (MEROPENEM) [Concomitant]
  19. CLINDAMYCIN HCL [Concomitant]

REACTIONS (7)
  - ACUTE RESPIRATORY FAILURE [None]
  - DEPRESSED LEVEL OF CONSCIOUSNESS [None]
  - DISEASE PROGRESSION [None]
  - LACTIC ACIDOSIS [None]
  - LUNG NEOPLASM MALIGNANT [None]
  - NEUTROPENIA [None]
  - WHITE BLOOD CELL COUNT DECREASED [None]
